FAERS Safety Report 21052078 (Version 4)
Quarter: 2022Q3

REPORT INFORMATION
  Report Type: Report from Study
  Country: US (occurrence: US)
  Receive Date: 20220707
  Receipt Date: 20220816
  Transmission Date: 20221026
  Serious: Yes (Hospitalization, Other)
  Sender: FDA-Public Use
  Company Number: US-NOVARTISPH-NVSC2022US153368

PATIENT
  Age: 49 Year
  Sex: Male
  Weight: 93.8 kg

DRUGS (3)
  1. LUTATHERA [Suspect]
     Active Substance: LUTETIUM OXODOTREOTIDE LU-177
     Indication: Paraganglion neoplasm
     Dosage: 198.194 MCI (LIQUID, EVERY 8 WEEKS TIMES 4 CYCLES, LIQUID, 370 MBQ/ML)
     Route: 042
     Dates: start: 20180815, end: 20190130
  2. DOTATATE GALLIUM GA-68 [Suspect]
     Active Substance: DOTATATE GALLIUM GA-68
     Indication: Paraganglion neoplasm
     Dosage: 5.37 MCI (LIQUID, AFTER EACH TWO CYCLES OF TREATMENT WHILE ON ACTIVE TREATMENT, THEN EVERY 24 WEEKS
     Route: 042
     Dates: start: 20181106, end: 20190326
  3. AMINO ACIDS, SOURCE UNSPECIFIED [Suspect]
     Active Substance: AMINO ACIDS, SOURCE UNSPECIFIED
     Indication: Paraganglion neoplasm
     Dosage: 1000 ML (LIQUID, EVERY 8 WEEKS TIMES 4 CYCLES)
     Route: 042
     Dates: start: 20180815

REACTIONS (3)
  - Haemothorax [Recovered/Resolved]
  - Anaemia [Recovered/Resolved]
  - Cholecystitis [Recovered/Resolved]

NARRATIVE: CASE EVENT DATE: 20181207
